FAERS Safety Report 20585319 (Version 3)
Quarter: 2022Q2

REPORT INFORMATION
  Report Type: Report from Study
  Country: US (occurrence: US)
  Receive Date: 20220312
  Receipt Date: 20220609
  Transmission Date: 20220721
  Serious: Yes (Other)
  Sender: FDA-Public Use
  Company Number: US-NOVARTISTESTPH-NVSC2022US057809

PATIENT
  Age: 44 Year
  Sex: Male

DRUGS (1)
  1. ENTRESTO [Suspect]
     Active Substance: SACUBITRIL\VALSARTAN
     Indication: Cardiac failure
     Dosage: 50 MG (25/26 MG), BID
     Route: 048
     Dates: start: 202102

REACTIONS (4)
  - Ejection fraction decreased [Unknown]
  - Blood sodium decreased [Unknown]
  - Dyspnoea [Unknown]
  - Atelectasis [Unknown]

NARRATIVE: CASE EVENT DATE: 20220201
